FAERS Safety Report 14683014 (Version 1)
Quarter: 2018Q1

REPORT INFORMATION
  Report Type: Spontaneous
  Country: US (occurrence: US)
  Receive Date: 20180327
  Receipt Date: 20180327
  Transmission Date: 20180509
  Serious: Yes (Other)
  Sender: FDA-Public Use
  Company Number: US-AMGEN-USASP2018038345

PATIENT
  Sex: Female

DRUGS (3)
  1. ENBREL [Suspect]
     Active Substance: ETANERCEPT
     Indication: PRODUCT USED FOR UNKNOWN INDICATION
     Dosage: UNK
     Route: 065
  2. METHOTREXATE SODIUM. [Suspect]
     Active Substance: METHOTREXATE SODIUM
     Indication: PRODUCT USED FOR UNKNOWN INDICATION
     Dosage: 50 MG/2ML 0.9 ML, QWK
     Route: 030
  3. XELJANZ [Suspect]
     Active Substance: TOFACITINIB CITRATE
     Indication: PRODUCT USED FOR UNKNOWN INDICATION
     Dosage: UNK
     Route: 065
     Dates: start: 201708

REACTIONS (16)
  - Chest discomfort [Not Recovered/Not Resolved]
  - Weight decreased [Unknown]
  - Raynaud^s phenomenon [Not Recovered/Not Resolved]
  - Musculoskeletal pain [Not Recovered/Not Resolved]
  - Gastritis [Not Recovered/Not Resolved]
  - Pain in extremity [Recovered/Resolved]
  - Chest pain [Not Recovered/Not Resolved]
  - Dyspepsia [Unknown]
  - Ulcer [Unknown]
  - Fatigue [Unknown]
  - Peripheral swelling [Unknown]
  - Urticaria [Unknown]
  - Helicobacter infection [Unknown]
  - Dermatitis allergic [Unknown]
  - Dyspnoea [Not Recovered/Not Resolved]
  - Dysphagia [Unknown]
